FAERS Safety Report 25442125 (Version 1)
Quarter: 2025Q2

REPORT INFORMATION
  Report Type: Report from Study
  Country: US (occurrence: US)
  Receive Date: 20250616
  Receipt Date: 20250616
  Transmission Date: 20250716
  Serious: Yes (Other)
  Sender: ALEXION PHARMACEUTICALS
  Company Number: US-AstraZeneca-CH-00889490A

PATIENT
  Age: 57 Year

DRUGS (2)
  1. CAPIVASERTIB [Suspect]
     Active Substance: CAPIVASERTIB
     Indication: Breast cancer female
  2. CRANBERRY [Concomitant]
     Active Substance: CRANBERRY
     Route: 065

REACTIONS (2)
  - Micturition urgency [Unknown]
  - Urinary retention [Unknown]
